FAERS Safety Report 19056076 (Version 1)
Quarter: 2021Q1

REPORT INFORMATION
  Report Type: Spontaneous
  Country: US (occurrence: US)
  Receive Date: 20210324
  Receipt Date: 20210324
  Transmission Date: 20210420
  Serious: Yes (Hospitalization)
  Sender: FDA-Public Use
  Company Number: None

PATIENT
  Age: 36 Year
  Sex: Female
  Weight: 88.65 kg

DRUGS (1)
  1. ADAKVEO [Suspect]
     Active Substance: CRIZANLIZUMAB-TMCA
     Indication: SICKLE CELL DISEASE
     Dates: start: 20210322

REACTIONS (7)
  - Back pain [None]
  - Chest pain [None]
  - Hypoxia [None]
  - Pyrexia [None]
  - Acute chest syndrome [None]
  - Pulmonary embolism [None]
  - Pain in extremity [None]

NARRATIVE: CASE EVENT DATE: 20210322
